FAERS Safety Report 17900415 (Version 1)
Quarter: 2020Q2

REPORT INFORMATION
  Report Type: Spontaneous
  Country: US (occurrence: US)
  Receive Date: 20200615
  Receipt Date: 20200615
  Transmission Date: 20200714
  Serious: Yes (Hospitalization)
  Sender: FDA-Public Use
  Company Number: None

PATIENT
  Age: 57 Year
  Sex: Male
  Weight: 68.4 kg

DRUGS (9)
  1. VENTOLIN HFA [Concomitant]
     Active Substance: ALBUTEROL SULFATE
  2. VITAMIN B12 [Concomitant]
     Active Substance: CYANOCOBALAMIN
  3. UCERIS [Concomitant]
     Active Substance: BUDESONIDE
  4. REMICADE [Suspect]
     Active Substance: INFLIXIMAB
  5. REMICADE [Concomitant]
     Active Substance: INFLIXIMAB
  6. MESALAMINE. [Concomitant]
     Active Substance: MESALAMINE
  7. CALCIUM CITRATE+D [Concomitant]
  8. ALBUTEROL. [Concomitant]
     Active Substance: ALBUTEROL
  9. SYNTHROID [Concomitant]
     Active Substance: LEVOTHYROXINE SODIUM

REACTIONS (8)
  - Haemoglobin decreased [None]
  - Haematocrit decreased [None]
  - Clostridium difficile colitis [None]
  - Fatigue [None]
  - Diarrhoea [None]
  - Asthenia [None]
  - Colitis ulcerative [None]
  - Drug ineffective [None]

NARRATIVE: CASE EVENT DATE: 20190829
